FAERS Safety Report 5755811-7 (Version None)
Quarter: 2008Q2

REPORT INFORMATION
  Report Type: 
  Country: None (occurrence: None)
  Receive Date: 20080528
  Receipt Date: 20080517
  Transmission Date: 20081010
  Serious: Yes (Hospitalization)
  Sender: FDA-Public Use
  Company Number: PAR_02210_2008

PATIENT
  Sex: Female
  Weight: 51.2565 kg

DRUGS (8)
  1. MEGACE ES [Suspect]
     Indication: DECREASED APPETITE
     Dosage: (5 ML QD ORAL), (5 ML QOD ORAL), (5 ML 1X/3 DAYS ORAL), (5 ML QD ORAL)
     Route: 048
     Dates: start: 20070101, end: 20080101
  2. MEGACE ES [Suspect]
     Indication: WEIGHT DECREASED
     Dosage: (5 ML QD ORAL), (5 ML QOD ORAL), (5 ML 1X/3 DAYS ORAL), (5 ML QD ORAL)
     Route: 048
     Dates: start: 20070101, end: 20080101
  3. MEGACE ES [Suspect]
     Indication: DECREASED APPETITE
     Dosage: (5 ML QD ORAL), (5 ML QOD ORAL), (5 ML 1X/3 DAYS ORAL), (5 ML QD ORAL)
     Route: 048
     Dates: start: 20080401, end: 20080510
  4. MEGACE ES [Suspect]
     Indication: WEIGHT DECREASED
     Dosage: (5 ML QD ORAL), (5 ML QOD ORAL), (5 ML 1X/3 DAYS ORAL), (5 ML QD ORAL)
     Route: 048
     Dates: start: 20080401, end: 20080510
  5. MEGACE ES [Suspect]
     Indication: DECREASED APPETITE
     Dosage: (5 ML QD ORAL), (5 ML QOD ORAL), (5 ML 1X/3 DAYS ORAL), (5 ML QD ORAL)
     Route: 048
     Dates: start: 20070501
  6. MEGACE ES [Suspect]
     Indication: WEIGHT DECREASED
     Dosage: (5 ML QD ORAL), (5 ML QOD ORAL), (5 ML 1X/3 DAYS ORAL), (5 ML QD ORAL)
     Route: 048
     Dates: start: 20070501
  7. MEGACE ES [Suspect]
     Indication: DECREASED APPETITE
     Dosage: (5 ML QD ORAL), (5 ML QOD ORAL), (5 ML 1X/3 DAYS ORAL), (5 ML QD ORAL)
     Route: 048
     Dates: start: 20080514
  8. MEGACE ES [Suspect]
     Indication: WEIGHT DECREASED
     Dosage: (5 ML QD ORAL), (5 ML QOD ORAL), (5 ML 1X/3 DAYS ORAL), (5 ML QD ORAL)
     Route: 048
     Dates: start: 20080514

REACTIONS (3)
  - BRONCHITIS [None]
  - DRUG INEFFECTIVE [None]
  - DYSGEUSIA [None]
